FAERS Safety Report 6522151-8 (Version None)
Quarter: 2009Q4

REPORT INFORMATION
  Report Type: 
  Country: None (occurrence: None)
  Receive Date: 20091229
  Receipt Date: 20091229
  Transmission Date: 20100525
  Serious: Yes (Other)
  Sender: FDA-Public Use
  Company Number: None

PATIENT
  Age: 29 Year
  Sex: Female
  Weight: 59.8748 kg

DRUGS (1)
  1. MIRENA [Suspect]
     Indication: CONTRACEPTION
     Dates: start: 20070501, end: 20091203

REACTIONS (13)
  - AFFECT LABILITY [None]
  - AGGRESSION [None]
  - ARTHRALGIA [None]
  - BREAST PAIN [None]
  - DEPRESSION [None]
  - DYSMENORRHOEA [None]
  - FATIGUE [None]
  - FIBROMYALGIA [None]
  - MOOD ALTERED [None]
  - MUSCULOSKELETAL STIFFNESS [None]
  - NECK PAIN [None]
  - PAIN [None]
  - THINKING ABNORMAL [None]
